FAERS Safety Report 6026113-9 (Version None)
Quarter: 2009Q1

REPORT INFORMATION
  Report Type: 
  Country: None (occurrence: None)
  Receive Date: 20090102
  Receipt Date: 20081222
  Transmission Date: 20090719
  Serious: Yes (Hospitalization)
  Sender: FDA-Public Use
  Company Number: US-ROCHE-602317

PATIENT
  Sex: Female

DRUGS (3)
  1. PEG-INTERFERON ALFA 2A (RO 25-8310) [Suspect]
     Dosage: DOSE FROM PROTOCOL.
     Route: 065
     Dates: start: 20080714
  2. RIBAVIRIN [Suspect]
     Route: 065
     Dates: start: 20080714
  3. BLINDED NITAZOXANIDE [Suspect]
     Dosage: DOSE BLINDED.
     Route: 048
     Dates: start: 20080714

REACTIONS (1)
  - HYPOKALAEMIA [None]
